FAERS Safety Report 5948910-8 (Version None)
Quarter: 2008Q4

REPORT INFORMATION
  Report Type: 
  Country: None (occurrence: None)
  Receive Date: 20081111
  Receipt Date: 20081105
  Transmission Date: 20090506
  Serious: Yes (Other)
  Sender: FDA-Public Use
  Company Number: BR-ASTRAZENECA-2008UW24844

PATIENT
  Age: 87 Year
  Sex: Female

DRUGS (7)
  1. ARIMIDEX [Suspect]
     Indication: BREAST CANCER
     Route: 048
     Dates: start: 20070701
  2. TAMOXIFEN [Suspect]
     Indication: BREAST CANCER
     Route: 048
  3. CAPTOPRIL [Concomitant]
     Indication: HYPERTENSION
     Route: 048
  4. ZOMETA [Concomitant]
     Dates: start: 20070701
  5. BRINZOLAMIDA [Concomitant]
     Indication: GLAUCOMA
  6. BIMATOPROST [Concomitant]
     Indication: GLAUCOMA
  7. BETAXOLOL [Concomitant]
     Indication: GLAUCOMA

REACTIONS (1)
  - GLAUCOMA [None]
